FAERS Safety Report 26141330 (Version 1)
Quarter: 2025Q4

REPORT INFORMATION
  Report Type: Spontaneous
  Country: US (occurrence: US)
  Receive Date: 20251210
  Receipt Date: 20251210
  Transmission Date: 20260117
  Serious: Yes (Death, Life-Threatening, Hospitalization, Other)
  Sender: AMGEN
  Company Number: US-AMGEN-USASP2025239339

PATIENT
  Age: 65 Year
  Sex: Female

DRUGS (2)
  1. INFLIXIMAB [Suspect]
     Active Substance: INFLIXIMAB
     Indication: Colitis ulcerative
     Dosage: UNK
     Route: 065
  2. CORTICOSTEROID NOS [Concomitant]
     Active Substance: CORTICOSTEROID NOS
     Indication: Colitis ulcerative

REACTIONS (12)
  - Disseminated aspergillosis [Fatal]
  - Acute respiratory failure [Unknown]
  - Pneumonia [Unknown]
  - Encephalopathy [Unknown]
  - Septic cerebral embolism [Unknown]
  - Tachycardia [Unknown]
  - Generalised oedema [Unknown]
  - Activities of daily living decreased [Unknown]
  - Malnutrition [Unknown]
  - Tangentiality [Unknown]
  - Sinus tachycardia [Unknown]
  - Disorientation [Unknown]
